FAERS Safety Report 7986818-7 (Version None)
Quarter: 2011Q4

REPORT INFORMATION
  Report Type: 
  Country: None (occurrence: None)
  Receive Date: 20111216
  Receipt Date: 20110902
  Transmission Date: 20120403
  Serious: No
  Sender: FDA-Public Use
  Company Number: US-BRISTOL-MYERS SQUIBB COMPANY-16018020

PATIENT
  Age: 58 Year
  Sex: Male

DRUGS (1)
  1. ABILIFY [Suspect]
     Dosage: MORNING AROUND 0700
     Dates: start: 20110830

REACTIONS (3)
  - FEELING ABNORMAL [None]
  - EYE DISORDER [None]
  - DRUG DISPENSING ERROR [None]
